FAERS Safety Report 16514172 (Version 2)
Quarter: 2019Q3

REPORT INFORMATION
  Report Type: Report from Study
  Country: None (occurrence: CA)
  Receive Date: 20190702
  Receipt Date: 20190925
  Transmission Date: 20191004
  Serious: Yes (Hospitalization, Other)
  Sender: FDA-Public Use
  Company Number: CA-ABBVIE-19K-028-2835367-00

PATIENT
  Sex: Female

DRUGS (1)
  1. HUMIRA [Suspect]
     Active Substance: ADALIMUMAB
     Indication: RHEUMATOID ARTHRITIS
     Route: 058
     Dates: start: 20151127, end: 201908

REACTIONS (7)
  - Ear injury [Unknown]
  - Pain [Unknown]
  - Ear infection [Recovered/Resolved]
  - Pneumonia [Recovered/Resolved]
  - Skin infection [Recovered/Resolved]
  - Malaise [Unknown]
  - Hypoacusis [Recovering/Resolving]

NARRATIVE: CASE EVENT DATE: 2019
